FAERS Safety Report 8135557-0 (Version None)
Quarter: 2012Q1

REPORT INFORMATION
  Report Type: 
  Country: None (occurrence: None)
  Receive Date: 20120214
  Receipt Date: 20120207
  Transmission Date: 20120608
  Serious: Yes (Hospitalization, Other)
  Sender: FDA-Public Use
  Company Number: US-BAYER-2010-002467

PATIENT
  Age: 23 Year
  Sex: Female
  Weight: 63.492 kg

DRUGS (2)
  1. YAZ [Suspect]
     Dosage: UNK
     Route: 048
     Dates: start: 20090901, end: 20091001
  2. ORTHO-NOVUM [Concomitant]
     Dosage: UNK
     Dates: start: 20090902

REACTIONS (2)
  - GALLBLADDER INJURY [None]
  - BILIARY COLIC [None]
